FAERS Safety Report 5088851-4 (Version None)
Quarter: 2006Q3

REPORT INFORMATION
  Report Type: 
  Country: None (occurrence: None)
  Receive Date: 20060825
  Receipt Date: 20060816
  Transmission Date: 20061208
  Serious: Yes (Hospitalization, Other)
  Sender: FDA-Public Use
  Company Number: US-AVENTIS-200616977US

PATIENT
  Sex: Female
  Weight: 136.4 kg

DRUGS (4)
  1. LANTUS [Suspect]
     Indication: DIABETES MELLITUS
  2. OPTICLIK (INSULIN INJECTION PEN) [Suspect]
  3. PROCRIT [Concomitant]
     Dosage: DOSE: UNK
  4. INSULIN [Concomitant]
     Dosage: DOSE: UNK

REACTIONS (12)
  - ANAEMIA [None]
  - BLOOD GLUCOSE DECREASED [None]
  - BLOOD GLUCOSE INCREASED [None]
  - CEREBROVASCULAR ACCIDENT [None]
  - DIABETIC RETINOPATHY [None]
  - FLUID RETENTION [None]
  - HEMIPARESIS [None]
  - HYPERTENSION [None]
  - OEDEMA [None]
  - RENAL FAILURE [None]
  - SLEEP APNOEA SYNDROME [None]
  - VISUAL DISTURBANCE [None]
